FAERS Safety Report 8702253 (Version 2)
Quarter: 2013Q4

REPORT INFORMATION
  Report Type: Spontaneous
  Country: US (occurrence: US)
  Receive Date: 20120803
  Receipt Date: 20131101
  Transmission Date: 20140711
  Serious: No
  Sender: FDA-Public Use
  Company Number: US-009507513-82110001

PATIENT
  Age: 36 Year
  Sex: Female
  Weight: 65.77 kg

DRUGS (1)
  1. CLINORIL [Suspect]
     Indication: ARTHRITIS
     Dosage: 300 MG, BID
     Route: 048
     Dates: start: 198011

REACTIONS (1)
  - Hirsutism [Unknown]
